FAERS Safety Report 6762274-1 (Version None)
Quarter: 2010Q2

REPORT INFORMATION
  Report Type: 
  Country: None (occurrence: None)
  Receive Date: 20100609
  Receipt Date: 20100531
  Transmission Date: 20101027
  Serious: Yes (Other)
  Sender: FDA-Public Use
  Company Number: FR-JNJFOC-20100600244

PATIENT
  Age: 53 Year
  Sex: Female

DRUGS (9)
  1. REMICADE [Suspect]
     Indication: COLITIS ULCERATIVE
     Dosage: 3 INFUSIONS
     Route: 042
  2. REMICADE [Suspect]
     Dosage: 2 MAINTENANCE INFUSIONS
     Route: 042
  3. REMICADE [Suspect]
     Route: 042
  4. REMICADE [Suspect]
     Dosage: 3 INFUSIONS
     Route: 042
  5. REMICADE [Suspect]
     Dosage: 2 MAINTENANCE INFUSIONS
     Route: 042
  6. REMICADE [Suspect]
     Dosage: 3 INFUSIONS
     Route: 042
  7. IMUREL [Concomitant]
     Indication: COLITIS ULCERATIVE
  8. PENTASA [Concomitant]
     Indication: COLITIS ULCERATIVE
  9. PENTASA [Concomitant]

REACTIONS (4)
  - ANTINUCLEAR ANTIBODY INCREASED [None]
  - ARTHRALGIA [None]
  - PERICARDIAL EFFUSION [None]
  - PYREXIA [None]
